FAERS Safety Report 8332754 (Version 4)
Quarter: 2015Q2

REPORT INFORMATION
  Report Type: Spontaneous
  Country: US (occurrence: US)
  Receive Date: 20120111
  Receipt Date: 20150513
  Transmission Date: 20150821
  Serious: Yes (Other)
  Sender: FDA-Public Use
  Company Number: US-AMGEN-USASP2011069548

PATIENT
  Age: 59 Year
  Sex: Male

DRUGS (1)
  1. ENBREL [Suspect]
     Active Substance: ETANERCEPT
     Indication: ANKYLOSING SPONDYLITIS
     Dosage: 50 MG, QWK
     Route: 065
     Dates: start: 20040518

REACTIONS (10)
  - Inflammation [Recovered/Resolved]
  - Bursitis [Not Recovered/Not Resolved]
  - Uveitis [Recovered/Resolved]
  - Meniscus injury [Recovered/Resolved]
  - Surgery [Recovered/Resolved]
  - Back disorder [Not Recovered/Not Resolved]
  - Rotator cuff syndrome [Recovered/Resolved]
  - Hypoacusis [Recovered/Resolved]
  - Plantar fasciitis [Not Recovered/Not Resolved]
  - Furuncle [Not Recovered/Not Resolved]

NARRATIVE: CASE EVENT DATE: 20100120
